FAERS Safety Report 7613328-9 (Version None)
Quarter: 2011Q3

REPORT INFORMATION
  Report Type: 
  Country: None (occurrence: None)
  Receive Date: 20110708
  Receipt Date: 20110616
  Transmission Date: 20111222
  Serious: Yes (Life-Threatening, Hospitalization, Other)
  Sender: FDA-Public Use
  Company Number: JPI-P-013021

PATIENT
  Age: 61 Year
  Sex: Male
  Weight: 140.6151 kg

DRUGS (9)
  1. CLOPIDOGREL [Concomitant]
  2. MULTIPLE UNSPECIFIED HEART MEDICATIONS [Concomitant]
  3. PAROXETINE HCL [Concomitant]
  4. XYREM [Suspect]
     Indication: SLEEP APNOEA SYNDROME
     Dosage: 8 GM (4 MG, 2 IN 1 D), ORAL UNKNOWN, ORAL 10.5 GM (5.25 GM, 2 IN 1 D), ORAL
     Route: 048
     Dates: start: 20050228
  5. XYREM [Suspect]
     Indication: NARCOLEPSY
     Dosage: 8 GM (4 MG, 2 IN 1 D), ORAL UNKNOWN, ORAL 10.5 GM (5.25 GM, 2 IN 1 D), ORAL
     Route: 048
     Dates: start: 20050228
  6. BLOOD PRESSURE MEDICATION [Concomitant]
  7. MODAFINIL [Concomitant]
  8. UNSPECIFIED CARDIAC MEDICATION [Suspect]
     Indication: PRODUCT USED FOR UNKNOWN INDICATION
  9. WATER PILL (UNSPECIFIED) [Concomitant]

REACTIONS (6)
  - PULSE ABSENT [None]
  - CAROTID ARTERY OCCLUSION [None]
  - ANEURYSM [None]
  - HYPOTENSION [None]
  - CHEST PAIN [None]
  - BLOOD PRESSURE IMMEASURABLE [None]
